FAERS Safety Report 5384734-0 (Version None)
Quarter: 2007Q3

REPORT INFORMATION
  Report Type: 
  Country: None (occurrence: None)
  Receive Date: 20070711
  Receipt Date: 20070703
  Transmission Date: 20080115
  Serious: Yes (Other)
  Sender: FDA-Public Use
  Company Number: BR-ABBOTT-07P-020-0373579-00

PATIENT
  Sex: Female

DRUGS (6)
  1. HUMIRA [Suspect]
     Indication: RHEUMATOID ARTHRITIS
     Dosage: 1 APPLICATION
     Route: 058
     Dates: start: 20070401
  2. HUMIRA [Suspect]
     Dosage: 2 APPLICATIONS
     Route: 058
  3. DEFLAZACORT [Concomitant]
     Indication: RHEUMATOID ARTHRITIS
     Route: 048
  4. FEXOFENADINE [Concomitant]
     Indication: ALLERGY PROPHYLAXIS
     Dosage: 1 TAB 3 DAYS BEFORE HUMIRA APPLICATION
     Route: 048
  5. MESALAZINE [Concomitant]
     Indication: ANTIINFLAMMATORY THERAPY
     Route: 048
  6. CORTICOID [Concomitant]
     Indication: RHEUMATOID ARTHRITIS
     Route: 042

REACTIONS (1)
  - LARYNGEAL OEDEMA [None]
